FAERS Safety Report 16884966 (Version 2)
Quarter: 2019Q4

REPORT INFORMATION
  Report Type: Spontaneous
  Country: US (occurrence: US)
  Receive Date: 20191004
  Receipt Date: 20191122
  Transmission Date: 20200122
  Serious: No
  Sender: FDA-Public Use
  Company Number: US-PFIZER INC-2019424200

PATIENT
  Age: 62 Year
  Sex: Female

DRUGS (1)
  1. XELJANZ XR [Suspect]
     Active Substance: TOFACITINIB CITRATE
     Dosage: 11 MG, DAILY
     Route: 048
     Dates: start: 20190811

REACTIONS (8)
  - Noninfective gingivitis [Unknown]
  - Stomatitis [Unknown]
  - Cheilitis [Unknown]
  - Pyrexia [Recovered/Resolved]
  - Headache [Unknown]
  - Alopecia [Unknown]
  - Acne [Recovering/Resolving]
  - Malaise [Recovered/Resolved]
